FAERS Safety Report 12790608 (Version 1)
Quarter: 2016Q3

REPORT INFORMATION
  Report Type: Spontaneous
  Country: US (occurrence: US)
  Receive Date: 20160929
  Receipt Date: 20160929
  Transmission Date: 20161109
  Serious: No
  Sender: FDA-Public Use
  Company Number: US-TEVA-639037USA

PATIENT
  Sex: Male
  Weight: 90.8 kg

DRUGS (1)
  1. CYCLOBENZAPRINE [Suspect]
     Active Substance: CYCLOBENZAPRINE
     Indication: INFLAMMATION

REACTIONS (2)
  - Adverse event [Unknown]
  - Drug ineffective [Unknown]
